FAERS Safety Report 17411772 (Version 1)
Quarter: 2020Q1

REPORT INFORMATION
  Report Type: Spontaneous
  Country: US (occurrence: US)
  Receive Date: 20200128
  Receipt Date: 20200128
  Transmission Date: 20200409
  Serious: No
  Sender: FDA-Public Use
  Company Number: None

PATIENT

DRUGS (5)
  1. KEPPRA [Concomitant]
     Active Substance: LEVETIRACETAM
  2. LEVETIRACETAM. [Suspect]
     Active Substance: LEVETIRACETAM
  3. PROPRANOLOL [Concomitant]
     Active Substance: PROPRANOLOL HYDROCHLORIDE
  4. TOPIRAMATE. [Concomitant]
     Active Substance: TOPIRAMATE
  5. QUETIAPINE FUMARATE. [Concomitant]
     Active Substance: QUETIAPINE FUMARATE

REACTIONS (8)
  - Headache [None]
  - Weight decreased [None]
  - Sleep disorder [None]
  - Delusion [None]
  - Hallucination, visual [None]
  - Hallucination, auditory [None]
  - Oropharyngeal discomfort [None]
  - Decreased appetite [None]
